FAERS Safety Report 11688821 (Version 5)
Quarter: 2016Q3

REPORT INFORMATION
  Report Type: Report from Study
  Country: FR (occurrence: FR)
  Receive Date: 20151102
  Receipt Date: 20160702
  Transmission Date: 20161109
  Serious: Yes (Hospitalization)
  Sender: FDA-Public Use
  Company Number: FR-AMGEN-FRACT2015113212

PATIENT
  Age: 31 Year
  Sex: Male

DRUGS (33)
  1. PARACETAMOL [Concomitant]
     Active Substance: ACETAMINOPHEN
     Indication: TUMOUR PAIN
     Dosage: 1000 MG, AS NECESSARY
     Route: 048
     Dates: start: 200907
  2. CALCIDOSE [Concomitant]
     Active Substance: CALCIUM CARBONATE
     Indication: HYPOCALCAEMIA
     Dosage: 500 MG, QD
     Route: 048
     Dates: start: 20090803, end: 2015
  3. XYZAL [Concomitant]
     Active Substance: LEVOCETIRIZINE DIHYDROCHLORIDE
     Indication: ANTIALLERGIC THERAPY
     Dosage: 1 UNIT, QD
     Route: 048
     Dates: start: 20120223, end: 201204
  4. ORAMORPH [Concomitant]
     Active Substance: MORPHINE SULFATE
     Indication: TUMOUR PAIN
     Dosage: 10 MG, QD
     Route: 048
     Dates: start: 20120102, end: 20120304
  5. LYRICA [Concomitant]
     Active Substance: PREGABALIN
     Indication: TUMOUR PAIN
     Dosage: 25 MG, BID
     Route: 048
     Dates: start: 200912, end: 201211
  6. POTASSIUM CHLORIDE. [Concomitant]
     Active Substance: POTASSIUM CHLORIDE
     Indication: HYPERCALCAEMIA
     Dosage: 3 G, QD
     Route: 042
     Dates: start: 20150721, end: 20150721
  7. OXYCONTIN [Concomitant]
     Active Substance: OXYCODONE HYDROCHLORIDE
     Indication: TUMOUR PAIN
     Dosage: 5 MG, BID
     Route: 048
     Dates: start: 200908, end: 20120227
  8. FORLAX [Concomitant]
     Active Substance: POLYETHYLENE GLYCOL 4000
     Indication: CONSTIPATION
     Dosage: 1 UNIT, AS NECESSARY
     Route: 048
     Dates: start: 200908, end: 20120228
  9. INEXIUM [Concomitant]
     Active Substance: ESOMEPRAZOLE
     Indication: GASTRIC DISORDER
     Dosage: 40 MG, QD
     Route: 048
     Dates: start: 20120107, end: 201204
  10. STILNOX [Concomitant]
     Active Substance: ZOLPIDEM TARTRATE
     Indication: ANXIETY
     Dosage: 10 MG, QD
     Route: 048
     Dates: start: 201201, end: 201204
  11. DECAN [Concomitant]
     Active Substance: DEXAMETHASONE
     Indication: HYPERCALCAEMIA
     Dosage: 1 UNIT, QD
     Route: 042
     Dates: start: 20150724, end: 20150724
  12. RED BLOOD CELLS [Concomitant]
     Active Substance: HUMAN RED BLOOD CELL
     Indication: ANAEMIA
     Dosage: 2 UNIT, QD
     Route: 042
     Dates: start: 20120131, end: 201202
  13. OXYNORM [Concomitant]
     Active Substance: OXYCODONE HYDROCHLORIDE
     Indication: TUMOUR PAIN
     Dosage: 5 MG, AS NECESSARY
     Route: 048
     Dates: start: 200908, end: 20120227
  14. DOLIPRANE [Concomitant]
     Active Substance: ACETAMINOPHEN
     Indication: HEADACHE
     Dosage: 1 G, AS NECESSARY
     Route: 048
     Dates: start: 201205, end: 20151024
  15. MAGNESIUM SULPHATE [Concomitant]
     Active Substance: MAGNESIUM SULFATE
     Indication: HYPERCALCAEMIA
     Dosage: 1.5 G, QD
     Route: 042
     Dates: start: 20150724, end: 20151027
  16. ZOMETA [Concomitant]
     Active Substance: ZOLEDRONIC ACID
     Indication: HYPERCALCAEMIA
     Dosage: 4 MG, UNK
     Route: 042
     Dates: start: 20151023, end: 20151023
  17. AUGMENTIN [Concomitant]
     Active Substance: AMOXICILLIN\CLAVULANATE POTASSIUM
     Indication: PYREXIA
     Dosage: 1 G, TID
     Route: 048
     Dates: start: 20120131, end: 201202
  18. CYMEVAN [Concomitant]
     Active Substance: GANCICLOVIR
     Dosage: 500 MG, QD
     Route: 042
     Dates: start: 20120213, end: 20120220
  19. NACL [Concomitant]
     Active Substance: SODIUM CHLORIDE
     Indication: ACUTE KIDNEY INJURY
     Dosage: 1000 ML, UNK
     Route: 042
     Dates: start: 20150712, end: 20151027
  20. CALCITONIN [Concomitant]
     Active Substance: CALCITONIN
     Indication: HYPERCALCAEMIA
     Dosage: 50 OTHER, QD
     Route: 042
     Dates: start: 20150721, end: 20150722
  21. CERNEVIT [Concomitant]
     Active Substance: VITAMINS
     Indication: HYPERCALCAEMIA
     Dosage: 1 UNIT, QD
     Route: 042
     Dates: start: 20150724, end: 20150724
  22. METHYLPREDNISOLONE. [Concomitant]
     Active Substance: METHYLPREDNISOLONE
     Dosage: 60 MG, QD
     Route: 042
     Dates: start: 20151025, end: 20151027
  23. DENOSUMAB [Suspect]
     Active Substance: DENOSUMAB
     Indication: BONE GIANT CELL TUMOUR
     Dosage: 120 MG, Q4WK
     Route: 058
     Dates: start: 20120220
  24. OXYNORM [Concomitant]
     Active Substance: OXYCODONE HYDROCHLORIDE
     Indication: NECK PAIN
  25. LAROXYL [Concomitant]
     Active Substance: AMITRIPTYLINE
     Indication: ANXIETY
     Dosage: 5 UNIT, BID
     Route: 048
     Dates: start: 201201, end: 201211
  26. ACUPAN [Concomitant]
     Active Substance: NEFOPAM HYDROCHLORIDE
     Indication: PAIN
     Dosage: 20 MG, UNK (CONTINUOUS INFUSION)
     Route: 042
     Dates: start: 20120221, end: 20120227
  27. HALDOL [Concomitant]
     Active Substance: HALOPERIDOL
     Indication: TUMOUR PAIN
     Dosage: 3 UNIT, TID
     Route: 048
     Dates: start: 20120110, end: 201204
  28. UVESTEROL [Concomitant]
     Active Substance: ASCORBIC ACID\ERGOCALCIFEROL\RETINOL\TOCOPHEROL
     Indication: TUMOUR PAIN
     Dosage: 100000 UNIT, 5 TIMES/WK
     Route: 048
     Dates: start: 20120305, end: 201204
  29. XANAX [Concomitant]
     Active Substance: ALPRAZOLAM
     Indication: ANXIETY
     Dosage: 0.25 MG, AS NECESSARY
     Route: 048
     Dates: start: 20120107, end: 201204
  30. PRIMPERAN [Concomitant]
     Active Substance: METOCLOPRAMIDE HYDROCHLORIDE
     Indication: NAUSEA
     Dosage: 2 UNIT, TID
     Route: 048
     Dates: start: 20120119, end: 20151027
  31. DIFFU K [Concomitant]
     Active Substance: POTASSIUM CHLORIDE
     Indication: VITAMIN SUPPLEMENTATION
     Dosage: 600 MG, QD
     Route: 048
     Dates: start: 20120224, end: 20151027
  32. TIENAM [Concomitant]
     Active Substance: CILASTATIN SODIUM\IMIPENEM
     Indication: PYREXIA
     Dosage: 500 MG, TID
     Route: 042
     Dates: start: 20120312, end: 20120320
  33. VERSATIS [Concomitant]
     Active Substance: LIDOCAINE
     Indication: TUMOUR PAIN
     Dosage: 1 OTHER, QD
     Route: 061
     Dates: start: 201210, end: 201211

REACTIONS (1)
  - Hypercalcaemia [Recovered/Resolved]

NARRATIVE: CASE EVENT DATE: 20151023
